FAERS Safety Report 6376103-1 (Version None)
Quarter: 2009Q3

REPORT INFORMATION
  Report Type: 
  Country: None (occurrence: None)
  Receive Date: 20090921
  Receipt Date: 20090911
  Transmission Date: 20100115
  Serious: Yes (Hospitalization, Other)
  Sender: FDA-Public Use
  Company Number: 230065J09BRA

PATIENT
  Age: 44 Year
  Sex: Male

DRUGS (3)
  1. REBIF [Suspect]
     Indication: RELAPSING-REMITTING MULTIPLE SCLEROSIS
     Dosage: 22 MCG, 3 IN 1 WEEKS
     Dates: start: 20071008
  2. HIGROTON (CHLORTALIDONE) [Concomitant]
  3. TOFRANIL [Concomitant]

REACTIONS (4)
  - FALL [None]
  - HAND FRACTURE [None]
  - LOWER LIMB FRACTURE [None]
  - WALKING AID USER [None]
